FAERS Safety Report 11522755 (Version 1)
Quarter: 2015Q3

REPORT INFORMATION
  Report Type: Spontaneous
  Country: US (occurrence: US)
  Receive Date: 20150918
  Receipt Date: 20150918
  Transmission Date: 20151125
  Serious: No
  Sender: FDA-Public Use
  Company Number: US-ROCHE-714322

PATIENT
  Age: 36 Year
  Sex: Female

DRUGS (4)
  1. PROZAC [Concomitant]
     Active Substance: FLUOXETINE HYDROCHLORIDE
     Indication: POST-TRAUMATIC STRESS DISORDER
     Route: 065
  2. PEGASYS [Suspect]
     Active Substance: PEGINTERFERON ALFA-2A
     Indication: HEPATITIS C
     Dosage: FORM: PRE-FILLED SYRINGES
     Route: 065
     Dates: start: 20100115, end: 20101105
  3. NEURONTIN [Concomitant]
     Active Substance: GABAPENTIN
     Indication: POST-TRAUMATIC STRESS DISORDER
     Route: 065
  4. RIBAVIRIN. [Suspect]
     Active Substance: RIBAVIRIN
     Indication: HEPATITIS C
     Dosage: DIVIDED DOSE
     Route: 065
     Dates: start: 20100115, end: 20101105

REACTIONS (8)
  - Blood count abnormal [Unknown]
  - Headache [Unknown]
  - White blood cell count decreased [Unknown]
  - Visual acuity reduced [Not Recovered/Not Resolved]
  - Anaemia [Unknown]
  - Weight decreased [Unknown]
  - Alopecia [Unknown]
  - Vomiting [Unknown]

NARRATIVE: CASE EVENT DATE: 20100115
